FAERS Safety Report 12298851 (Version 1)
Quarter: 2016Q2

REPORT INFORMATION
  Report Type: Report from Study
  Country: US (occurrence: US)
  Receive Date: 20160425
  Receipt Date: 20160425
  Transmission Date: 20160815
  Serious: Yes (Other)
  Sender: FDA-Public Use
  Company Number: US-ROCHE-1736883

PATIENT
  Age: 69 Year
  Sex: Female
  Weight: 55.39 kg

DRUGS (5)
  1. TAXOL [Concomitant]
     Active Substance: PACLITAXEL
     Indication: OVARIAN CANCER
     Route: 042
     Dates: start: 20151103, end: 20160322
  2. SYNTHROID [Concomitant]
     Active Substance: LEVOTHYROXINE SODIUM
     Indication: HYPOTHYROIDISM
     Dosage: BEEN TAKING FOR YEARS
     Route: 048
  3. CARBOPLATIN. [Suspect]
     Active Substance: CARBOPLATIN
     Indication: OVARIAN CANCER
     Route: 042
     Dates: start: 20151103, end: 20160322
  4. NEUPOGEN [Concomitant]
     Active Substance: FILGRASTIM
     Indication: WHITE BLOOD CELL COUNT DECREASED
     Dosage: GETTING WEEKLY WHEN SHE WAS ON CHEMO/ INJECTIONS
     Route: 065
  5. AVASTIN [Suspect]
     Active Substance: BEVACIZUMAB
     Indication: OVARIAN CANCER
     Route: 042
     Dates: start: 201512

REACTIONS (8)
  - Blood pressure increased [Unknown]
  - Flushing [Recovered/Resolved]
  - Nasopharyngitis [Recovering/Resolving]
  - Pruritus [Recovered/Resolved]
  - Heart rate increased [Unknown]
  - White blood cell count decreased [Unknown]
  - Oxygen saturation decreased [Unknown]
  - Pain [Recovered/Resolved]

NARRATIVE: CASE EVENT DATE: 20160301
